FAERS Safety Report 11316797 (Version 4)
Quarter: 2015Q4

REPORT INFORMATION
  Report Type: Spontaneous
  Country: US (occurrence: US)
  Receive Date: 20150728
  Receipt Date: 20151006
  Transmission Date: 20160304
  Serious: No
  Sender: FDA-Public Use
  Company Number: US-PFIZER INC-2015251914

PATIENT
  Age: 73 Year
  Sex: Female

DRUGS (1)
  1. PREMARIN [Suspect]
     Active Substance: ESTROGENS, CONJUGATED
     Indication: ATROPHIC VULVOVAGINITIS
     Dosage: UNK
     Dates: start: 20150718

REACTIONS (4)
  - Vulvovaginal pain [Not Recovered/Not Resolved]
  - Viral infection [Unknown]
  - Product quality issue [Not Recovered/Not Resolved]
  - Vaginal erosion [Unknown]

NARRATIVE: CASE EVENT DATE: 20150718
